FAERS Safety Report 24977864 (Version 2)
Quarter: 2025Q1

REPORT INFORMATION
  Report Type: Spontaneous
  Country: PR (occurrence: PR)
  Receive Date: 20250217
  Receipt Date: 20250331
  Transmission Date: 20250408
  Serious: No
  Sender: PFIZER
  Company Number: PR-PFIZER INC-202500026153

PATIENT
  Age: 63 Year
  Sex: Male
  Weight: 88.435 kg

DRUGS (2)
  1. RUXIENCE [Suspect]
     Active Substance: RITUXIMAB-PVVR
  2. RITUXAN [Suspect]
     Active Substance: RITUXIMAB
     Dates: start: 20240907

REACTIONS (1)
  - Anxiety [Unknown]
